FAERS Safety Report 10299083 (Version 2)
Quarter: 2014Q3

REPORT INFORMATION
  Report Type: Spontaneous
  Country: SE (occurrence: SE)
  Receive Date: 20140711
  Receipt Date: 20140804
  Transmission Date: 20150326
  Serious: Yes (Hospitalization)
  Sender: FDA-Public Use
  Company Number: SE-ASTRAZENECA-2014SE49054

PATIENT
  Age: 93 Year
  Sex: Female

DRUGS (27)
  1. NEXIUM [Suspect]
     Active Substance: ESOMEPRAZOLE MAGNESIUM
     Indication: ABDOMINAL PAIN
     Route: 048
     Dates: start: 20140509, end: 20140512
  2. NEXIUM [Suspect]
     Active Substance: ESOMEPRAZOLE MAGNESIUM
     Indication: ABDOMINAL PAIN
     Dosage: ESOMPERAZOLE, 20 MG DAILY
     Route: 048
     Dates: start: 20140512, end: 20140520
  3. KLACID (ABBOTT SCANDINAVIA) [Suspect]
     Active Substance: CLARITHROMYCIN
     Indication: HELICOBACTER INFECTION
     Route: 065
     Dates: start: 20140512, end: 20140520
  4. FURIX RETARD (TAKEDA PHARMA) [Concomitant]
  5. ZOPIKLON (PILUM PHARMA) [Concomitant]
     Active Substance: ZOPICLONE
  6. NITROGLYCERIN RECIP [Concomitant]
     Active Substance: NITROGLYCERIN
     Route: 060
  7. KLACID (ABBOTT SCANDINAVIA) [Suspect]
     Active Substance: CLARITHROMYCIN
     Indication: HELICOBACTER INFECTION
     Route: 065
     Dates: start: 20140509, end: 20140512
  8. LACTULOS MEDA [Concomitant]
     Active Substance: LACTULOSE
     Dosage: 670 MG/ML
     Route: 048
  9. OMEPRAZOLE. [Concomitant]
     Active Substance: OMEPRAZOLE
  10. PAPAVERIN RECIP [Concomitant]
     Active Substance: PAPAVERINE
  11. DIMOR (RATIOPHARM) [Concomitant]
     Active Substance: LOPERAMIDE
  12. NEXIUM [Suspect]
     Active Substance: ESOMEPRAZOLE MAGNESIUM
     Indication: HELICOBACTER INFECTION
     Route: 048
     Dates: start: 20140509, end: 20140512
  13. FURIX RETARD (TAKEDA PHARMA) [Concomitant]
  14. TRAMADOL [Concomitant]
     Active Substance: TRAMADOL
  15. AMIMOX [Suspect]
     Active Substance: AMOXICILLIN
     Indication: ABDOMINAL PAIN
     Route: 065
     Dates: start: 20140509, end: 20140512
  16. AMLODIPIN [Concomitant]
     Active Substance: AMLODIPINE BESYLATE
  17. NEXIUM [Suspect]
     Active Substance: ESOMEPRAZOLE MAGNESIUM
     Indication: ULCER
     Dosage: ESOMPERAZOLE, 20 MG DAILY
     Route: 048
     Dates: start: 20140512, end: 20140520
  18. TROMBYL (PFIZER) [Concomitant]
  19. OXYCONTIN (MINDIPHARMA) [Concomitant]
  20. IMDUR [Concomitant]
     Active Substance: ISOSORBIDE MONONITRATE
     Route: 048
  21. METOPROLOL GEA RETARD [Concomitant]
  22. DICLOFENAC [Concomitant]
     Active Substance: DICLOFENAC
  23. NEXIUM [Suspect]
     Active Substance: ESOMEPRAZOLE MAGNESIUM
     Indication: ULCER
     Route: 048
     Dates: start: 20140509, end: 20140512
  24. NEXIUM [Suspect]
     Active Substance: ESOMEPRAZOLE MAGNESIUM
     Indication: HELICOBACTER INFECTION
     Dosage: ESOMPERAZOLE, 20 MG DAILY
     Route: 048
     Dates: start: 20140512, end: 20140520
  25. AMIMOX [Suspect]
     Active Substance: AMOXICILLIN
     Indication: GASTRIC ULCER
     Route: 065
     Dates: start: 20140509, end: 20140512
  26. AMIMOX [Suspect]
     Active Substance: AMOXICILLIN
     Indication: HELICOBACTER INFECTION
     Route: 065
     Dates: start: 20140509, end: 20140512
  27. GILBENKLAMID RECIP [Concomitant]
     Active Substance: GLYBURIDE

REACTIONS (6)
  - Pharyngeal oedema [Unknown]
  - Nausea [Unknown]
  - Swollen tongue [Unknown]
  - Lip swelling [Unknown]
  - Vomiting [Unknown]
  - Diarrhoea [Unknown]

NARRATIVE: CASE EVENT DATE: 20140509
